FAERS Safety Report 4897088-0 (Version None)
Quarter: 2006Q1

REPORT INFORMATION
  Report Type: 
  Country: None (occurrence: None)
  Receive Date: 20060127
  Receipt Date: 20060114
  Transmission Date: 20060701
  Serious: Yes (Death, Hospitalization)
  Sender: FDA-Public Use
  Company Number: 2005-02671

PATIENT
  Age: 60 Year
  Sex: Male
  Weight: 96 kg

DRUGS (9)
  1. VELCADE [Suspect]
     Indication: MULTIPLE MYELOMA
     Dosage: 2.80 MG, INTRAVENOUS
     Route: 042
     Dates: start: 20051108, end: 20051118
  2. ACETAMINOPHEN W/ PROPOXYPHENE HCL [Concomitant]
  3. INSULIN NEUTRAL (INSULIN) [Concomitant]
  4. ALLOPURINOL [Concomitant]
  5. ACYCLOVIR [Concomitant]
  6. PANTOPRAZOLE SODIUM [Concomitant]
  7. BACTRIM [Concomitant]
  8. OXYCODONE (OXYCODONE) [Concomitant]
  9. DOCUSATE SODIUM (DOCUSATE SODIUM) [Concomitant]

REACTIONS (10)
  - BLOOD BICARBONATE DECREASED [None]
  - BLOOD GLUCOSE INCREASED [None]
  - BLOOD LACTATE DEHYDROGENASE INCREASED [None]
  - DYSURIA [None]
  - GAMMA-GLUTAMYLTRANSFERASE INCREASED [None]
  - NERVE ROOT COMPRESSION [None]
  - PANCYTOPENIA [None]
  - RENAL FAILURE ACUTE [None]
  - SPINAL DISORDER [None]
  - THERAPY NON-RESPONDER [None]
